FAERS Safety Report 8022278-8 (Version None)
Quarter: 2012Q1

REPORT INFORMATION
  Report Type: 
  Country: None (occurrence: None)
  Receive Date: 20120104
  Receipt Date: 20111228
  Transmission Date: 20120608
  Serious: Yes (Hospitalization)
  Sender: FDA-Public Use
  Company Number: PHHY2011FR109678

PATIENT
  Sex: Female
  Weight: 32 kg

DRUGS (1)
  1. TRILEPTAL [Suspect]
     Indication: EPILEPSY
     Dosage: 8 ML, BID
     Route: 048

REACTIONS (2)
  - HYPOTHYROIDISM [None]
  - THYROXINE DECREASED [None]
